FAERS Safety Report 6189783-0 (Version None)
Quarter: 2009Q2

REPORT INFORMATION
  Report Type: 
  Country: None (occurrence: None)
  Receive Date: 20090514
  Receipt Date: 20090505
  Transmission Date: 20091009
  Serious: Yes (Other)
  Sender: FDA-Public Use
  Company Number: US-JNJFOC-20060906208

PATIENT
  Sex: Female

DRUGS (9)
  1. RISPERDAL [Suspect]
     Indication: PANIC ATTACK
  2. RISPERDAL [Suspect]
     Indication: NIGHTMARE
  3. RISPERDAL [Suspect]
     Indication: ANXIETY
  4. RISPERDAL [Suspect]
     Indication: POST-TRAUMATIC STRESS DISORDER
  5. SEROQUEL [Suspect]
     Indication: PANIC ATTACK
  6. SEROQUEL [Suspect]
     Indication: NIGHTMARE
  7. SEROQUEL [Suspect]
     Indication: ANXIETY
  8. SEROQUEL [Suspect]
     Indication: POST-TRAUMATIC STRESS DISORDER
  9. ZOLOFT [Concomitant]
     Indication: DEPRESSION

REACTIONS (1)
  - TYPE 2 DIABETES MELLITUS [None]
